FAERS Safety Report 9462452 (Version 1)
Quarter: 2013Q3

REPORT INFORMATION
  Report Type: Spontaneous
  Country: US (occurrence: US)
  Receive Date: 20130816
  Receipt Date: 20130816
  Transmission Date: 20140515
  Serious: Yes (Other)
  Sender: FDA-Public Use
  Company Number: US-BAXTER-2013BAX032108

PATIENT
  Sex: Female

DRUGS (5)
  1. IFOSFAMIDE FOR INJECTION [Suspect]
     Indication: UTERINE LEIOMYOSARCOMA
     Dosage: OVER 8 HOURS (DAY 1)
  2. IFOSFAMIDE FOR INJECTION [Suspect]
     Dosage: 1.2 GM/M2 (DAYS 1-3)
  3. MESNEX (MESNA) INJECTION - 3 GRAM [Suspect]
     Indication: UTERINE LEIOMYOSARCOMA
     Route: 042
  4. DOXORUBICIN [Suspect]
     Indication: UTERINE LEIOMYOSARCOMA
     Dosage: DAYS 1-3
     Route: 042
  5. DACARBAZINE [Suspect]
     Indication: UTERINE LEIOMYOSARCOMA
     Dosage: DAYS 1-3
     Route: 042

REACTIONS (1)
  - Disease progression [Unknown]
